FAERS Safety Report 7992236-8 (Version None)
Quarter: 2011Q4

REPORT INFORMATION
  Report Type: 
  Country: None (occurrence: None)
  Receive Date: 20111219
  Receipt Date: 20110215
  Transmission Date: 20120403
  Serious: No
  Sender: FDA-Public Use
  Company Number: US-ASTRAZENECA-2011SE08786

PATIENT
  Age: 57 Year
  Sex: Male

DRUGS (5)
  1. CRESTOR [Suspect]
     Route: 048
  2. LISINOPRIL [Concomitant]
  3. PLAVIX [Concomitant]
  4. METOPROLOL SUCCINATE [Suspect]
     Route: 048
  5. NEXIUM [Suspect]
     Route: 048

REACTIONS (4)
  - ABDOMINAL DISTENSION [None]
  - NAUSEA [None]
  - VOMITING [None]
  - WEIGHT INCREASED [None]
